FAERS Safety Report 17215751 (Version 1)
Quarter: 2019Q4

REPORT INFORMATION
  Report Type: Spontaneous
  Country: US (occurrence: US)
  Receive Date: 20191230
  Receipt Date: 20191230
  Transmission Date: 20200122
  Serious: Yes (Hospitalization, Other)
  Sender: FDA-Public Use
  Company Number: US-PURDUE PHARMA-GBR-2019-0073963

PATIENT
  Age: 10 Year
  Sex: Male

DRUGS (8)
  1. MAGNESIUM [Concomitant]
     Active Substance: MAGNESIUM
     Indication: STATUS ASTHMATICUS
  2. SALBUTAMOL [Suspect]
     Active Substance: ALBUTEROL
     Indication: STATUS ASTHMATICUS
     Dosage: 20 MG, Q1H (CONTINUOUS NEBULIZATION)
     Route: 055
  3. METHYLPREDNISOLONE. [Concomitant]
     Active Substance: METHYLPREDNISOLONE
     Indication: STATUS ASTHMATICUS
     Route: 042
  4. NON-PMN THEOPHYLLINE [Suspect]
     Active Substance: THEOPHYLLINE ANHYDROUS
     Indication: STATUS ASTHMATICUS
     Dosage: 1.6 MG/KG, Q1H (INFUSION)
     Route: 065
  5. TERBUTALINE [Suspect]
     Active Substance: TERBUTALINE
     Indication: STATUS ASTHMATICUS
     Dosage: 4 MCG/KG, MINUTE
     Route: 065
  6. ISOFLURANE. [Concomitant]
     Active Substance: ISOFLURANE
     Indication: STATUS ASTHMATICUS
  7. KETAMINE [Concomitant]
     Active Substance: KETAMINE
     Indication: STATUS ASTHMATICUS
  8. IPRATROPIUM BROMIDE. [Concomitant]
     Active Substance: IPRATROPIUM BROMIDE
     Indication: STATUS ASTHMATICUS
     Dosage: NEBULIZATION
     Route: 055

REACTIONS (2)
  - Ventricular tachycardia [Recovered/Resolved]
  - Unmasking of previously unidentified disease [Unknown]
